FAERS Safety Report 5621489-6 (Version None)
Quarter: 2008Q1

REPORT INFORMATION
  Report Type: 
  Country: None (occurrence: None)
  Receive Date: 20080211
  Receipt Date: 20071204
  Transmission Date: 20080703
  Serious: No
  Sender: FDA-Public Use
  Company Number: US-BAYER-200716227NA

PATIENT
  Age: 18 Year
  Sex: Female
  Weight: 54 kg

DRUGS (2)
  1. YASMIN [Suspect]
     Indication: DYSMENORRHOEA
     Route: 048
     Dates: start: 20070801, end: 20071101
  2. ALLERGY SHOTS [Concomitant]
     Indication: SEASONAL ALLERGY

REACTIONS (5)
  - ABDOMINAL PAIN LOWER [None]
  - ACNE [None]
  - DIZZINESS [None]
  - LETHARGY [None]
  - NAUSEA [None]
